FAERS Safety Report 7108557-7 (Version None)
Quarter: 2010Q4

REPORT INFORMATION
  Report Type: 
  Country: None (occurrence: None)
  Receive Date: 20101117
  Receipt Date: 20100903
  Transmission Date: 20110411
  Serious: No
  Sender: FDA-Public Use
  Company Number: A0880400A

PATIENT
  Age: 84 Year
  Sex: Male

DRUGS (6)
  1. VOTRIENT [Suspect]
     Dosage: 1600MG PER DAY
     Route: 048
     Dates: start: 20100701, end: 20100902
  2. ASPIRIN [Concomitant]
  3. METOPROLOL [Concomitant]
  4. MICRONASE [Concomitant]
  5. NORVASC [Concomitant]
  6. PLAVIX [Concomitant]

REACTIONS (1)
  - OVERDOSE [None]
